FAERS Safety Report 4454730-6 (Version None)
Quarter: 2004Q3

REPORT INFORMATION
  Report Type: 
  Country: None (occurrence: None)
  Receive Date: 20040920
  Receipt Date: 20040920
  Transmission Date: 20050211
  Serious: Yes (Hospitalization)
  Sender: FDA-Public Use
  Company Number: None

PATIENT
  Age: 60 Year
  Sex: Female
  Weight: 72.5755 kg

DRUGS (5)
  1. AVASTIN [Suspect]
     Indication: COLON CANCER METASTATIC
     Dosage: 370 MG EVERY 14 DAYS INTRAVENOUS
     Route: 042
     Dates: start: 20040601, end: 20040915
  2. ALOXI [Concomitant]
  3. CPT11 [Concomitant]
  4. LEUCOVORIN CALCIUM [Concomitant]
  5. FLUOROURACIL [Concomitant]

REACTIONS (9)
  - ABDOMINAL PAIN UPPER [None]
  - ASTHENIA [None]
  - COLD SWEAT [None]
  - DUODENITIS [None]
  - ERYTHEMA [None]
  - GASTRITIS EROSIVE [None]
  - LABORATORY TEST ABNORMAL [None]
  - PALLOR [None]
  - PEPTIC ULCER [None]
